FAERS Safety Report 21065518 (Version 1)
Quarter: 2022Q3

REPORT INFORMATION
  Report Type: Spontaneous
  Country: US (occurrence: None)
  Receive Date: 20220711
  Receipt Date: 20220711
  Transmission Date: 20221026
  Serious: No
  Sender: FDA-Public Use
  Company Number: None

PATIENT
  Sex: Male

DRUGS (1)
  1. HUMIRA [Suspect]
     Active Substance: ADALIMUMAB
     Indication: Psoriasis
     Dosage: FREQUENCY : EVERY OTHER WEEK;?
     Route: 058
     Dates: start: 20220701

REACTIONS (5)
  - Device leakage [None]
  - Wrong technique in device usage process [None]
  - Scratch [None]
  - Drug dose omission by device [None]
  - Symptom recurrence [None]

NARRATIVE: CASE EVENT DATE: 20220701
